FAERS Safety Report 6110407-2 (Version None)
Quarter: 2009Q1

REPORT INFORMATION
  Report Type: 
  Country: None (occurrence: None)
  Receive Date: 20090310
  Receipt Date: 20090227
  Transmission Date: 20090719
  Serious: Yes (Other)
  Sender: FDA-Public Use
  Company Number: US-PFIZER INC-2008054662

PATIENT
  Sex: Male
  Weight: 72.727 kg

DRUGS (4)
  1. CHANTIX [Suspect]
     Indication: SMOKING CESSATION THERAPY
     Dosage: 1 MG, 2X/DAY
     Dates: start: 20080601
  2. ANALGESICS [Concomitant]
  3. ARTHRITIS PAIN FORMULA [Concomitant]
  4. ANTIDEPRESSANTS [Concomitant]

REACTIONS (1)
  - ANXIETY [None]
